FAERS Safety Report 10955404 (Version 2)
Quarter: 2015Q2

REPORT INFORMATION
  Report Type: Spontaneous
  Country: US (occurrence: None)
  Receive Date: 20150324
  Receipt Date: 20150508
  Transmission Date: 20150821
  Serious: Yes (Death, Life-Threatening, Hospitalization, Disabling, Other)
  Sender: FDA-Public Use
  Company Number: US2015GSK037357

PATIENT
  Age: 63 Year
  Sex: Female

DRUGS (2)
  1. TRIUMEQ [Suspect]
     Active Substance: ABACAVIR SULFATE\DOLUTEGRAVIR SODIUM\LAMIVUDINE
     Indication: HIV INFECTION
     Dates: start: 20150107, end: 20150114
  2. TRIUMEQ [Suspect]
     Active Substance: ABACAVIR SULFATE\DOLUTEGRAVIR SODIUM\LAMIVUDINE
     Indication: ACQUIRED IMMUNODEFICIENCY SYNDROME
     Dates: start: 20150107, end: 20150114

REACTIONS (11)
  - Abdominal pain [None]
  - Dysarthria [None]
  - Thrombocytopenia [None]
  - Liver function test abnormal [None]
  - Rash [None]
  - Transient ischaemic attack [None]
  - Musculoskeletal chest pain [None]
  - Hypersensitivity [None]
  - Ataxia [None]
  - Cough [None]
  - Muscular weakness [None]

NARRATIVE: CASE EVENT DATE: 20150108
